FAERS Safety Report 9691058 (Version 1)
Quarter: 2013Q4

REPORT INFORMATION
  Report Type: Report from Study
  Country: US (occurrence: US)
  Receive Date: 20131115
  Receipt Date: 20131115
  Transmission Date: 20140711
  Serious: Yes (Hospitalization)
  Sender: FDA-Public Use
  Company Number: US-ACTELION-A-US2013-90853

PATIENT
  Age: 21 Year
  Sex: Male

DRUGS (1)
  1. TRACLEER [Suspect]
     Indication: SICKLE CELL ANAEMIA
     Route: 048

REACTIONS (2)
  - Gallbladder operation [Unknown]
  - Post procedural complication [Unknown]
